FAERS Safety Report 7483690-9 (Version None)
Quarter: 2011Q2

REPORT INFORMATION
  Report Type: 
  Country: None (occurrence: None)
  Receive Date: 20110509
  Receipt Date: 20110426
  Transmission Date: 20111010
  Serious: Yes (Hospitalization)
  Sender: FDA-Public Use
  Company Number: 1000020643

PATIENT
  Age: 78 Year
  Sex: Male

DRUGS (9)
  1. CITALOPRAM HYDROBROMIDE [Suspect]
     Dosage: 10 MG (10 MG, 1N 1 D),ORAL
     Route: 048
     Dates: start: 20110328, end: 20110329
  2. CITALOPRAM HYDROBROMIDE [Suspect]
     Dosage: 10 MG (10 MG,  1 IN 1 D),ORAL
     Route: 048
     Dates: start: 20110324, end: 20110326
  3. NOVOMIX (BIPHASIC INSULIN ASPART) (BIPHASIC INSULIN ASPART) [Concomitant]
  4. AMOXICILLIN [Suspect]
     Indication: BACTERIAL PROSTATITIS
     Dosage: 1 G (1 GM,1 IN 1 D),INTRAVENOUS (NOT OTHERWISE SPECIFIED)
     Route: 042
     Dates: start: 20110326, end: 20110329
  5. NOVORAPID (INSULIN ASPART) (INSULIN ASPART) [Concomitant]
  6. PLAVIX [Concomitant]
  7. CEFOTAXIME (CEFOTAXIME)(INJECTION)(CEFOTAXIME) [Concomitant]
  8. CARDENSIEL (BISOPROLOL FUMARATE) (BISOPROLOL FUMARATE) [Concomitant]
  9. TARDXFERON (FERROUS SULFATE) (FERROUS SULFATE) [Concomitant]

REACTIONS (4)
  - HYPONATRAEMIA [None]
  - CYTOLYTIC HEPATITIS [None]
  - HYPERKALAEMIA [None]
  - MUSCULOSKELETAL STIFFNESS [None]
